FAERS Safety Report 14110807 (Version 1)
Quarter: 2017Q4

REPORT INFORMATION
  Report Type: Spontaneous
  Country: SG (occurrence: SG)
  Receive Date: 20171020
  Receipt Date: 20171020
  Transmission Date: 20180321
  Serious: Yes (Death, Other)
  Sender: FDA-Public Use
  Company Number: SG-PFIZER INC-2013134735

PATIENT
  Age: 37 Year
  Sex: Male
  Weight: 52.4 kg

DRUGS (3)
  1. POTASSIUM CHLORIDE. [Concomitant]
     Active Substance: POTASSIUM CHLORIDE
     Dosage: FIVE BROKEN AMPOULES, EACH STAINED WITH A CLEAR LIQUID
  2. PROPOFOL. [Suspect]
     Active Substance: PROPOFOL
     Dosage: 1600 MG, UNK
     Route: 042
  3. CALCIUM GLUCONATE. [Concomitant]
     Active Substance: CALCIUM GLUCONATE
     Dosage: SIX BROKEN AMPOULES, EACH STAINED WITH A MILKY LIQUID

REACTIONS (2)
  - Completed suicide [Fatal]
  - Overdose [Fatal]
